FAERS Safety Report 4638899-6 (Version None)
Quarter: 2005Q2

REPORT INFORMATION
  Report Type: 
  Country: None (occurrence: None)
  Receive Date: 20050419
  Receipt Date: 20050413
  Transmission Date: 20051028
  Serious: Yes (Hospitalization, Other)
  Sender: FDA-Public Use
  Company Number: PHBS2005SE05282

PATIENT
  Age: 63 Year
  Sex: Female
  Weight: 85 kg

DRUGS (4)
  1. SANDIMMUNE [Suspect]
     Indication: PSORIASIS
     Dosage: 100 MG, BID
     Route: 048
     Dates: start: 20040101, end: 20050301
  2. SANDIMMUNE [Suspect]
     Dosage: 75 MG, BID
     Route: 048
     Dates: start: 20050301, end: 20050401
  3. SANDIMMUNE [Suspect]
     Dosage: 50 MG, BID
     Route: 048
     Dates: start: 20050401
  4. LANVIS [Suspect]
     Indication: PSORIASIS
     Dates: end: 20050316

REACTIONS (7)
  - BLOOD CREATININE INCREASED [None]
  - BLOOD PRESSURE SYSTOLIC INCREASED [None]
  - CEREBRAL HAEMORRHAGE [None]
  - EPISTAXIS [None]
  - HYPERTENSION [None]
  - LEUKOPENIA [None]
  - THROMBOCYTOPENIA [None]
